FAERS Safety Report 9316235 (Version 1)
Quarter: 2013Q2

REPORT INFORMATION
  Report Type: Spontaneous
  Country: US (occurrence: None)
  Receive Date: 20130528
  Receipt Date: 20130528
  Transmission Date: 20140414
  Serious: Yes (Hospitalization)
  Sender: FDA-Public Use
  Company Number: None

PATIENT
  Age: 63 Year
  Sex: Male

DRUGS (1)
  1. DIVALPROEX [Suspect]
     Route: 048
     Dates: start: 20130416, end: 20130419

REACTIONS (5)
  - VIIth nerve paralysis [None]
  - Muscular weakness [None]
  - Hyperammonaemia [None]
  - Anticonvulsant drug level above therapeutic [None]
  - Mental status changes [None]
